FAERS Safety Report 5013928-9 (Version None)
Quarter: 2006Q2

REPORT INFORMATION
  Report Type: 
  Country: None (occurrence: None)
  Receive Date: 20060526
  Receipt Date: 20060526
  Transmission Date: 20061013
  Serious: Yes (Hospitalization)
  Sender: FDA-Public Use
  Company Number: None

PATIENT
  Age: 77 Year
  Sex: Male
  Weight: 95.709 kg

DRUGS (11)
  1. WARFARIN SODIUM [Suspect]
     Dosage: 5MG   DAILY  PO
     Route: 048
     Dates: start: 20050211, end: 20060525
  2. NITROGLYCERIN 0.4 SL [Concomitant]
  3. BEMETANIDE [Concomitant]
  4. FELODIPINE [Concomitant]
  5. HYDRALAZINE HCL [Concomitant]
  6. HYDROCHLOROTHIAZIDE [Concomitant]
  7. LOSARTAN POTASSIUM [Concomitant]
  8. METFORMIN [Concomitant]
  9. METOPROLOL TARTRATE [Concomitant]
  10. NITROGLYCERIN 6.5 MG CAP [Concomitant]
  11. SIMVASTATIN [Concomitant]

REACTIONS (4)
  - CHEST PAIN [None]
  - DIZZINESS [None]
  - DYSPNOEA [None]
  - GASTROINTESTINAL HAEMORRHAGE [None]
